FAERS Safety Report 7747436 (Version 19)
Quarter: 2020Q1

REPORT INFORMATION
  Report Type: Spontaneous
  Country: US (occurrence: US)
  Receive Date: 20110104
  Receipt Date: 20200108
  Transmission Date: 20200409
  Serious: Yes (Other)
  Sender: FDA-Public Use
  Company Number: US-SANOFI-AVENTIS-2010SA078355

PATIENT
  Age: 65 Year
  Sex: Female
  Weight: 63.18 kg

DRUGS (20)
  1. MULTAQ [Suspect]
     Active Substance: DRONEDARONE
     Indication: ATRIAL FIBRILLATION
     Dosage: 400 MG,BID
     Route: 048
     Dates: start: 20101125
  2. MULTAQ [Suspect]
     Active Substance: DRONEDARONE
     Dosage: 400 MG,BID
     Route: 048
     Dates: start: 20101125
  3. MULTAQ [Suspect]
     Active Substance: DRONEDARONE
     Dosage: 400 MG,BID
     Route: 048
     Dates: start: 20101125
  4. MULTAQ [Suspect]
     Active Substance: DRONEDARONE
     Dosage: 400 MG,BID
     Route: 048
     Dates: start: 20101125
  5. MULTAQ [Suspect]
     Active Substance: DRONEDARONE
     Dosage: 400 MG,BID
     Route: 048
     Dates: start: 20101125
  6. ACTONEL [Concomitant]
     Active Substance: RISEDRONATE SODIUM
     Dosage: 35 MG,QW
     Route: 065
     Dates: end: 2011
  7. CALCIUM CARBONATE;ERGOCALCIFEROL [Concomitant]
  8. ACETYLSALICYLIC ACID [Concomitant]
     Active Substance: ASPIRIN
     Dosage: 325 MG,UNK
     Route: 048
     Dates: start: 201101
  9. ATORVASTATIN [Concomitant]
     Active Substance: ATORVASTATIN
     Dosage: 10 MG,UNK
  10. MULTAQ [Suspect]
     Active Substance: DRONEDARONE
     Dosage: 400 MG,BID
     Route: 048
     Dates: start: 20101125
  11. ACETYLSALICYLIC ACID [Concomitant]
     Active Substance: ASPIRIN
     Dosage: 325 MG,UNK
     Route: 048
  12. ALPRAZOLAM. [Concomitant]
     Active Substance: ALPRAZOLAM
     Dosage: .5 MG,BID
  13. ROSUVASTATIN CALCIUM. [Concomitant]
     Active Substance: ROSUVASTATIN CALCIUM
     Dosage: 5 MG,UNK
     Dates: start: 2011
  14. XANAX [Concomitant]
     Active Substance: ALPRAZOLAM
     Indication: ANXIETY
  15. MULTAQ [Suspect]
     Active Substance: DRONEDARONE
     Indication: ATRIAL FLUTTER
     Dosage: 400 MG,BID
     Route: 048
     Dates: start: 20101125
  16. MULTAQ [Suspect]
     Active Substance: DRONEDARONE
     Dosage: 400 MG,BID
     Route: 048
     Dates: start: 20101125
  17. ALPRAZOLAM. [Concomitant]
     Active Substance: ALPRAZOLAM
     Indication: ANXIETY
     Dosage: .25 MG,BID
  18. ALPRAZOLAM. [Concomitant]
     Active Substance: ALPRAZOLAM
     Dosage: 1 MG,QD
  19. MULTAQ [Suspect]
     Active Substance: DRONEDARONE
     Dosage: 400 MG,BID
     Route: 048
     Dates: start: 20101125
  20. FISH OIL [Concomitant]
     Active Substance: FISH OIL

REACTIONS (29)
  - Angle closure glaucoma [Not Recovered/Not Resolved]
  - Blepharospasm [Not Recovered/Not Resolved]
  - Pulmonary function test abnormal [Unknown]
  - Osteoporosis [Unknown]
  - Anxiety [Unknown]
  - Visual impairment [Not Recovered/Not Resolved]
  - Circadian rhythm sleep disorder [Unknown]
  - Constipation [Not Recovered/Not Resolved]
  - Pain in extremity [Unknown]
  - Eye pain [Not Recovered/Not Resolved]
  - Eye disorder [Unknown]
  - Tension headache [Not Recovered/Not Resolved]
  - Product complaint [Unknown]
  - Nightmare [Unknown]
  - Tooth infection [Not Recovered/Not Resolved]
  - Heart rate decreased [Unknown]
  - Wheezing [Unknown]
  - Atrial fibrillation [Unknown]
  - Heart rate irregular [Not Recovered/Not Resolved]
  - Pulmonary fibrosis [Unknown]
  - Skin exfoliation [Recovered/Resolved]
  - Nervousness [Unknown]
  - Blood glucose increased [Unknown]
  - Rash erythematous [Recovered/Resolved]
  - Depression [Unknown]
  - Pulmonary mass [Unknown]
  - Heart rate increased [Recovered/Resolved]
  - Generalised anxiety disorder [Not Recovered/Not Resolved]
  - Pleural fibrosis [Unknown]

NARRATIVE: CASE EVENT DATE: 20101222
